FAERS Safety Report 8977734 (Version 1)
Quarter: 2012Q4

REPORT INFORMATION
  Report Type: 
  Country: CH (occurrence: CH)
  Receive Date: 20121219
  Receipt Date: 20121219
  Transmission Date: 20130627
  Serious: Yes (Other)
  Sender: FDA-Public Use
  Company Number: CH-ASTRAZENECA-2012SE93758

PATIENT
  Age: 0 Day
  Sex: Female

DRUGS (3)
  1. SEROQUEL [Suspect]
     Route: 064
  2. CIPRALEX [Suspect]
     Route: 064
  3. LABETALOL [Concomitant]
     Indication: HYPERTENSION

REACTIONS (4)
  - Premature baby [Unknown]
  - Metabolic acidosis [Unknown]
  - Respiratory failure [Unknown]
  - Hypernatraemia [Unknown]
